FAERS Safety Report 8341314-2 (Version None)
Quarter: 2012Q2

REPORT INFORMATION
  Report Type: 
  Country: None (occurrence: None)
  Receive Date: 20120507
  Receipt Date: 20120430
  Transmission Date: 20120825
  Serious: Yes (Other)
  Sender: FDA-Public Use
  Company Number: US-CELGENEUS-163-21880-12043255

PATIENT
  Sex: Female

DRUGS (3)
  1. WHOLE BLOOD [Concomitant]
     Dosage: 2 UNITS
     Route: 041
     Dates: start: 20120413
  2. REVLIMID [Suspect]
     Dosage: 25 MILLIGRAM
     Route: 048
     Dates: start: 20071004
  3. REVLIMID [Suspect]
     Dosage: 20 MILLIGRAM
     Route: 048
     Dates: end: 20110713

REACTIONS (3)
  - HODGKIN'S DISEASE RECURRENT [None]
  - FATIGUE [None]
  - MYELODYSPLASTIC SYNDROME [None]
